FAERS Safety Report 18133803 (Version 3)
Quarter: 2020Q3

REPORT INFORMATION
  Report Type: Spontaneous
  Country: CH (occurrence: CH)
  Receive Date: 20200811
  Receipt Date: 20200902
  Transmission Date: 20201103
  Serious: Yes (Other)
  Sender: FDA-Public Use
  Company Number: CH-PFIZER INC-2020298976

PATIENT
  Age: 71 Year
  Sex: Female

DRUGS (14)
  1. AMPHOTERICIN B, LIPOSOME [Concomitant]
     Active Substance: AMPHOTERICIN B
     Indication: ANTIFUNGAL PROPHYLAXIS
     Dosage: 5 MG/KG, 1X/DAY
  2. IMATINIB. [Suspect]
     Active Substance: IMATINIB MESYLATE
     Indication: ACUTE MYELOID LEUKAEMIA
     Dosage: UNK, CYCLIC
  3. FLUCONAZOLE. [Concomitant]
     Active Substance: FLUCONAZOLE
     Indication: ANTIFUNGAL PROPHYLAXIS
     Dosage: 400 MG, 1X/DAY
  4. PIPERACILLIN AND TAZOBACTAM [Concomitant]
     Active Substance: PIPERACILLIN SODIUM\TAZOBACTAM SODIUM
     Indication: STREPTOCOCCAL BACTERAEMIA
     Dosage: UNK
  5. CASPOFUNGIN [Concomitant]
     Active Substance: CASPOFUNGIN
     Indication: ANTIFUNGAL PROPHYLAXIS
     Dosage: 70 MG (ON DAY 1)
  6. HYDROCORTISONE SODIUM SUCCINATE [Suspect]
     Active Substance: HYDROCORTISONE SODIUM SUCCINATE
     Indication: ACUTE MYELOID LEUKAEMIA
     Dosage: UNK,TRIPLE INTRATHECAL CHEMOTHERAPY
     Route: 037
  7. METHOTREXATE SODIUM. [Suspect]
     Active Substance: METHOTREXATE SODIUM
     Indication: ACUTE MYELOID LEUKAEMIA
     Dosage: UNK
     Route: 037
  8. ISAVUCONAZOLE [Concomitant]
     Active Substance: ISAVUCONAZOLE
     Dosage: 200 MG, 1X/DAY (200 MG THREE TIMES DAILY ON DAY 1 AND 2, FOLLOWED BY 200 MG ONCE DAILY)
     Route: 048
  9. CYTARABINE. [Suspect]
     Active Substance: CYTARABINE
     Indication: ACUTE MYELOID LEUKAEMIA
     Dosage: 200 MG/M2, CYCLIC (DAYS 1?7)
  10. CYTARABINE. [Suspect]
     Active Substance: CYTARABINE
     Dosage: UNK,TRIPLE INTRATHECAL CHEMOTHERAPY
     Route: 037
  11. DAUNORUBICIN [Suspect]
     Active Substance: DAUNORUBICIN
     Indication: ACUTE MYELOID LEUKAEMIA
     Dosage: 60 MG/M2, CYCLIC (DAYS 1,2 AND 3)
  12. DASATINIB. [Suspect]
     Active Substance: DASATINIB
     Indication: ACUTE MYELOID LEUKAEMIA
     Dosage: 140 MG, 1X/DAY FROM DAY 3
  13. CASPOFUNGIN [Concomitant]
     Active Substance: CASPOFUNGIN
     Dosage: 50 MG, 1X/DAY (70 MG ON DAY 1, FOLLOWED BY 50 MG ONCE DAILY)
  14. ISAVUCONAZOLE [Concomitant]
     Active Substance: ISAVUCONAZOLE
     Indication: ANTIFUNGAL PROPHYLAXIS
     Dosage: 200 MG, 3X/DAY (ON DAY 1 AND 2)
     Route: 048

REACTIONS (1)
  - Neutropenia [Recovered/Resolved]
